FAERS Safety Report 11929743 (Version 1)
Quarter: 2016Q1

REPORT INFORMATION
  Report Type: Spontaneous
  Country: US (occurrence: None)
  Receive Date: 20160119
  Receipt Date: 20160119
  Transmission Date: 20160526
  Serious: Yes (Other)
  Sender: FDA-Public Use
  Company Number: None

PATIENT
  Age: 76 Year
  Sex: Female
  Weight: 67.13 kg

DRUGS (13)
  1. JANUVIA [Concomitant]
     Active Substance: SITAGLIPTIN PHOSPHATE
  2. VITAMIN D [Concomitant]
     Active Substance: CHOLECALCIFEROL
  3. HYDROCHLORITHIAZIDE [Concomitant]
     Active Substance: HYDROCHLOROTHIAZIDE
  4. ALBUTEROL WITH NEBULIZER [Concomitant]
  5. CALACIUM CITRATE WITH MAGNESIUM [Concomitant]
  6. ALENDRONATE 70 MG HYDERABAD INDIA [Suspect]
     Active Substance: ALENDRONATE SODIUM
     Indication: BONE DENSITY DECREASED
     Dosage: ONCE A WEK PILL, ONCE A WEEK (TUES) TAKE PILL WITH 8OZ WATER
  7. PLAVIX [Concomitant]
     Active Substance: CLOPIDOGREL BISULFATE
  8. VENTOLIN [Concomitant]
     Active Substance: ALBUTEROL SULFATE
  9. ENALAPRIL [Concomitant]
     Active Substance: ENALAPRIL
  10. ASPIRIN. [Concomitant]
     Active Substance: ASPIRIN
  11. CENTRIUM SILVER FOR WOMEN 50+ [Concomitant]
  12. METFORMIN [Concomitant]
     Active Substance: METFORMIN HYDROCHLORIDE
  13. ADVAIR HFA [Concomitant]
     Active Substance: FLUTICASONE PROPIONATE\SALMETEROL XINAFOATE

REACTIONS (6)
  - Dyspnoea [None]
  - Blood glucose increased [None]
  - Back pain [None]
  - Glaucoma [None]
  - Sleep disorder due to general medical condition, insomnia type [None]
  - Abdominal pain upper [None]

NARRATIVE: CASE EVENT DATE: 20160115
